FAERS Safety Report 7653090-7 (Version None)
Quarter: 2011Q3

REPORT INFORMATION
  Report Type: 
  Country: None (occurrence: None)
  Receive Date: 20110722
  Receipt Date: 20101007
  Transmission Date: 20111222
  Serious: Yes (Hospitalization)
  Sender: FDA-Public Use
  Company Number: UTC-001530

PATIENT
  Age: 48 Year
  Sex: Female

DRUGS (2)
  1. REMODULIN [Suspect]
     Dosage: 345.6 UG/KG (0.24 UG/KG, 1 IN 1 MIN), SUBCUTANEOUS
     Route: 058
  2. REVATIO [Concomitant]

REACTIONS (1)
  - DYSPNOEA [None]
